FAERS Safety Report 18637768 (Version 2)
Quarter: 2021Q1

REPORT INFORMATION
  Report Type: Spontaneous
  Country: US (occurrence: US)
  Receive Date: 20201218
  Receipt Date: 20210302
  Transmission Date: 20210419
  Serious: No
  Sender: FDA-Public Use
  Company Number: US-ASTRAZENECA-2020SF55028

PATIENT
  Age: 58 Year
  Sex: Female
  Weight: 72.6 kg

DRUGS (3)
  1. PULMICORT FLEXHALER [Suspect]
     Active Substance: BUDESONIDE
     Indication: DYSPNOEA
     Dosage: 180 MCG TO INHALE 2 PUFFS, TWO TIMES A DAY
     Route: 055
     Dates: start: 202009
  2. PULMICORT FLEXHALER [Suspect]
     Active Substance: BUDESONIDE
     Indication: DYSPNOEA
     Dosage: 180 MCG TO INHALE 2 PUFFS, TWO TIMES A DAY
     Route: 055
     Dates: start: 202011
  3. PULMICORT FLEXHALER [Suspect]
     Active Substance: BUDESONIDE
     Indication: DYSPNOEA
     Dosage: 180 MCG TO INHALE 2 PUFFS, TWO TIMES A DAY
     Route: 055

REACTIONS (7)
  - Speech disorder [Recovered/Resolved]
  - Incorrect dose administered by device [Unknown]
  - Drug delivery system issue [Unknown]
  - Product dose omission issue [Recovering/Resolving]
  - Product taste abnormal [Unknown]
  - Dyspnoea [Recovering/Resolving]
  - Drug ineffective [Recovering/Resolving]

NARRATIVE: CASE EVENT DATE: 202009
